FAERS Safety Report 20438889 (Version 3)
Quarter: 2025Q1

REPORT INFORMATION
  Report Type: Spontaneous
  Country: US (occurrence: US)
  Receive Date: 20220207
  Receipt Date: 20250107
  Transmission Date: 20250408
  Serious: No
  Sender: PFIZER
  Company Number: US-PFIZER INC-202101855937

PATIENT
  Age: 74 Year
  Sex: Male

DRUGS (2)
  1. VYNDAMAX [Suspect]
     Active Substance: TAFAMIDIS
     Indication: Amyloidosis
     Dosage: 61 MG, DAILY
     Dates: start: 202112
  2. VYNDAMAX [Suspect]
     Active Substance: TAFAMIDIS
     Indication: Cardiac failure congestive
     Dosage: 61 MG, ONCE DAILY
     Route: 048

REACTIONS (5)
  - Weight increased [Recovered/Resolved]
  - Nocturia [Unknown]
  - Oedema peripheral [Unknown]
  - Snoring [Unknown]
  - Dyspnoea [Unknown]
